FAERS Safety Report 8421671-9 (Version None)
Quarter: 2012Q2

REPORT INFORMATION
  Report Type: 
  Country: None (occurrence: None)
  Receive Date: 20120608
  Receipt Date: 20120531
  Transmission Date: 20120825
  Serious: Yes (Life-Threatening, Other)
  Sender: FDA-Public Use
  Company Number: JP-GENZYME-THYM-1002979

PATIENT
  Sex: Male
  Weight: 36 kg

DRUGS (17)
  1. FILGRASTIM [Concomitant]
     Indication: ADRENOLEUKODYSTROPHY
     Dosage: UNK
     Route: 065
     Dates: start: 20110608, end: 20110625
  2. MELPHALAN HYDROCHLORIDE [Concomitant]
     Indication: ADRENOLEUKODYSTROPHY
     Dosage: UNK
     Route: 065
     Dates: start: 20110530, end: 20110531
  3. THYMOGLOBULIN [Suspect]
     Indication: BONE MARROW CONDITIONING REGIMEN
     Dosage: 85 MG, QD
     Route: 042
     Dates: start: 20110531, end: 20110601
  4. FAMOTIDINE [Concomitant]
     Indication: PROPHYLAXIS
     Dosage: UNK
     Route: 065
     Dates: start: 20110527
  5. URSODIOL [Concomitant]
     Dosage: UNK
     Dates: start: 20110620, end: 20110812
  6. FLUDARABINE PHOSPHATE [Concomitant]
     Indication: ADRENOLEUKODYSTROPHY
     Dosage: UNK
     Route: 065
     Dates: start: 20110527, end: 20110531
  7. TACROLIMUS [Concomitant]
     Indication: PROPHYLAXIS AGAINST GRAFT VERSUS HOST DISEASE
     Dosage: UNK
     Route: 065
     Dates: start: 20110602, end: 20110606
  8. CYCLOSPORINE [Concomitant]
     Dosage: UNK
     Dates: start: 20110628
  9. METHOTREXATE [Concomitant]
     Indication: PROPHYLAXIS AGAINST GRAFT VERSUS HOST DISEASE
     Dosage: UNK
     Route: 065
     Dates: start: 20110604, end: 20110614
  10. ACYCLOVIR [Concomitant]
     Dosage: UNK
     Dates: start: 20110527, end: 20110601
  11. URSODIOL [Concomitant]
     Indication: PROPHYLAXIS
     Dosage: UNK
     Route: 065
     Dates: start: 20110527, end: 20110601
  12. SULFAMETHOPRIM [Concomitant]
     Indication: INFECTION PROPHYLAXIS
     Dosage: UNK
     Route: 065
     Dates: start: 20110702
  13. MICAFUNGIN SODIUM [Concomitant]
     Indication: INFECTION PROPHYLAXIS
     Dosage: UNK
     Route: 065
     Dates: start: 20110527, end: 20110620
  14. HYDROCORTISONE SODIUM SUCCINATE [Concomitant]
     Indication: PREMEDICATION
     Dosage: UNK
     Route: 065
     Dates: start: 20110530, end: 20110621
  15. ACYCLOVIR [Concomitant]
     Dosage: UNK
     Dates: start: 20110621, end: 20110708
  16. CYCLOSPORINE [Concomitant]
     Indication: PROPHYLAXIS AGAINST GRAFT VERSUS HOST DISEASE
     Dosage: UNK
     Route: 065
     Dates: start: 20110607, end: 20110627
  17. ACYCLOVIR [Concomitant]
     Indication: ANTIVIRAL PROPHYLAXIS
     Dosage: UNK
     Route: 065
     Dates: start: 20110602, end: 20110622

REACTIONS (7)
  - TOXIC ENCEPHALOPATHY [None]
  - CYTOMEGALOVIRUS INFECTION [None]
  - CHRONIC GRAFT VERSUS HOST DISEASE [None]
  - INFECTION [None]
  - GRAFT VERSUS HOST DISEASE IN SKIN [None]
  - HYPERTENSION [None]
  - CONVULSION [None]
